FAERS Safety Report 7763410-0 (Version None)
Quarter: 2011Q3

REPORT INFORMATION
  Report Type: 
  Country: None (occurrence: None)
  Receive Date: 20110920
  Receipt Date: 20110913
  Transmission Date: 20111222
  Serious: Yes (Death)
  Sender: FDA-Public Use
  Company Number: US-ACTELION-A-US2011-53310

PATIENT

DRUGS (1)
  1. TRACLEER [Suspect]
     Indication: SARCOIDOSIS
     Dosage: UNK MG, UNK
     Route: 048
     Dates: start: 20110526, end: 20110821

REACTIONS (1)
  - CARDIOPULMONARY FAILURE [None]
